FAERS Safety Report 6627006-6 (Version None)
Quarter: 2010Q1

REPORT INFORMATION
  Report Type: 
  Country: None (occurrence: None)
  Receive Date: 20100311
  Receipt Date: 20091123
  Transmission Date: 20100710
  Serious: No
  Sender: FDA-Public Use
  Company Number: US-KINGPHARMUSA00001-K200901483

PATIENT
  Age: 51 Year
  Sex: Male
  Weight: 108.84 kg

DRUGS (5)
  1. EMBEDA [Suspect]
     Indication: PAIN
     Dosage: 60 MG, BID
     Route: 048
     Dates: start: 20091111
  2. EMBEDA [Suspect]
     Indication: ARTHRITIS
  3. CLONIDINE [Concomitant]
     Indication: HYPERTENSION
     Dosage: .2 MG, TID
     Route: 048
  4. AMLODIPINE [Concomitant]
     Indication: HYPERTENSION
     Dosage: 5 MG, QD
     Route: 048
  5. TRIAMTERENE AND HYDROCHLOROTHIAZIDE [Concomitant]
     Indication: BLOOD PRESSURE INCREASED
     Dosage: 37.5/25, QD
     Route: 048

REACTIONS (4)
  - BREAKTHROUGH PAIN [None]
  - CONSTIPATION [None]
  - DRUG INEFFECTIVE [None]
  - ERECTILE DYSFUNCTION [None]
